FAERS Safety Report 14820186 (Version 1)
Quarter: 2018Q2

REPORT INFORMATION
  Report Type: Spontaneous
  Country: IE (occurrence: IE)
  Receive Date: 20180427
  Receipt Date: 20180427
  Transmission Date: 20180711
  Serious: Yes (Hospitalization, Other)
  Sender: FDA-Public Use
  Company Number: PHHY2018IE072652

PATIENT
  Age: 52 Year
  Sex: Female

DRUGS (4)
  1. BISOPROLOL [Suspect]
     Active Substance: BISOPROLOL
     Dosage: 1.25 MG, BID (SINCE MID 2017)
     Route: 065
     Dates: start: 2017
  2. BISOPROLOL [Suspect]
     Active Substance: BISOPROLOL
     Dosage: 8.75 MG, UNK
     Route: 048
     Dates: start: 201610, end: 201612
  3. BISOPROLOL [Suspect]
     Active Substance: BISOPROLOL
     Dosage: 1.25 MG, Q12H
     Route: 048
     Dates: start: 201612
  4. BISOPROLOL [Suspect]
     Active Substance: BISOPROLOL
     Indication: ARRHYTHMIA
     Dosage: DOSE WAS TITRATED UP TO 8.75MG BETWEEN JUN - OCT 2016
     Route: 048
     Dates: start: 201606, end: 201610

REACTIONS (7)
  - Anxiety [Not Recovered/Not Resolved]
  - Drug dependence [Not Recovered/Not Resolved]
  - Asthenia [Not Recovered/Not Resolved]
  - Hypotension [Not Recovered/Not Resolved]
  - Malaise [Not Recovered/Not Resolved]
  - Heart rate irregular [Not Recovered/Not Resolved]
  - Withdrawal syndrome [Not Recovered/Not Resolved]
